FAERS Safety Report 18294261 (Version 2)
Quarter: 2020Q3

REPORT INFORMATION
  Report Type: Spontaneous
  Country: IT (occurrence: IT)
  Receive Date: 20200921
  Receipt Date: 20200925
  Transmission Date: 20201103
  Serious: Yes (Other)
  Sender: FDA-Public Use
  Company Number: IT-AMGEN-ITASP2020150470

PATIENT
  Age: 63 Year
  Sex: Female
  Weight: 46 kg

DRUGS (7)
  1. METHOTREXATE. [Concomitant]
     Active Substance: METHOTREXATE
     Dosage: 15 MILLIGRAM
     Route: 058
  2. GABAPENTIN. [Concomitant]
     Active Substance: GABAPENTIN
     Dosage: 300 MILLIGRAM
     Route: 048
  3. ASACOL [Concomitant]
     Active Substance: MESALAMINE
     Dosage: 4 DOSAGE FORM, 800 MILLIGRAM
  4. LENDORMIN [Concomitant]
     Active Substance: BROTIZOLAM
     Dosage: 5 DROP,  (1/12 MILLILITRE)
     Route: 048
  5. ASACOL [Concomitant]
     Active Substance: MESALAMINE
     Dosage: 3 DOSAGE FORM, 500 MILLIGRAM
  6. AMGEVITA [Suspect]
     Active Substance: ADALIMUMAB
     Indication: ENTEROPATHIC SPONDYLITIS
     Dosage: 2 DOSAGE FORM
     Route: 058
     Dates: start: 20200724, end: 20200830
  7. SAFLUTAN [Concomitant]
     Active Substance: TAFLUPROST
     Dosage: UNK

REACTIONS (1)
  - Stomatitis [Unknown]

NARRATIVE: CASE EVENT DATE: 20200901
